FAERS Safety Report 10233198 (Version 1)
Quarter: 2014Q2

REPORT INFORMATION
  Report Type: Spontaneous
  Country: IT (occurrence: IT)
  Receive Date: 20140612
  Receipt Date: 20140612
  Transmission Date: 20141212
  Serious: Yes (Other)
  Sender: FDA-Public Use
  Company Number: IT-ASTRAZENECA-2014SE39548

PATIENT
  Age: 27910 Day
  Sex: Female

DRUGS (5)
  1. LUCEN [Suspect]
     Indication: GASTRIC ULCER
     Route: 048
  2. EUTIROX (LEVOTHYROXINE) [Concomitant]
     Indication: HYPOTHYROIDISM
     Dosage: 125 UG TABLETS
     Route: 048
  3. TERAXANS (PERINDOPRIL AND INDAPAMIDE) [Concomitant]
     Indication: ESSENTIAL HYPERTENSION
     Dosage: 10 MG/2.5 MG FILM COATED TABLETS
  4. TOTALIP (ATORVASTATIN) [Concomitant]
     Indication: HYPERCHOLESTEROLAEMIA
     Dosage: 10 MG TABLETS
  5. CLEXANE (ENOXAPARIN) [Concomitant]
     Indication: THROMBOSIS PROPHYLAXIS
     Dosage: 4000 UI SOLUTION FOR INJECTION

REACTIONS (1)
  - Neutropenia [Unknown]
